FAERS Safety Report 11927959 (Version 1)
Quarter: 2016Q1

REPORT INFORMATION
  Report Type: Spontaneous
  Country: BR (occurrence: BR)
  Receive Date: 20160119
  Receipt Date: 20160119
  Transmission Date: 20160526
  Serious: Yes (Other)
  Sender: FDA-Public Use
  Company Number: BR-JNJFOC-20160110929

PATIENT
  Sex: Male

DRUGS (1)
  1. REMICADE [Suspect]
     Active Substance: INFLIXIMAB
     Indication: PSORIASIS
     Dosage: APP 2.5 OR 3 YRS AGO
     Route: 042

REACTIONS (3)
  - Skin haemorrhage [Unknown]
  - Weight increased [Unknown]
  - Psoriasis [Unknown]
